FAERS Safety Report 6063112-5 (Version None)
Quarter: 2009Q1

REPORT INFORMATION
  Report Type: 
  Country: None (occurrence: None)
  Receive Date: 20090203
  Receipt Date: 20090122
  Transmission Date: 20090719
  Serious: Yes (Other)
  Sender: FDA-Public Use
  Company Number: US-PFIZER INC-2009160768

PATIENT
  Sex: Female

DRUGS (3)
  1. DEPO-MEDROL [Suspect]
     Indication: EPICONDYLITIS
     Dosage: UNK
     Dates: start: 20061208
  2. XYLOCAINE [Suspect]
     Indication: EPICONDYLITIS
     Dosage: UNK
     Dates: start: 20061208
  3. MARCAINE [Suspect]
     Indication: EPICONDYLITIS
     Dosage: UNK
     Dates: start: 20061208

REACTIONS (1)
  - OSTEOMYELITIS [None]
